FAERS Safety Report 5314703-8 (Version None)
Quarter: 2007Q2

REPORT INFORMATION
  Report Type: 
  Country: None (occurrence: None)
  Receive Date: 20070426
  Receipt Date: 20070411
  Transmission Date: 20071010
  Serious: Yes (Other)
  Sender: FDA-Public Use
  Company Number: SPV1-2007-02095

PATIENT
  Age: 15 Year
  Sex: Female
  Weight: 70.3 kg

DRUGS (3)
  1. ADDERALL XR (AMPHETHAMINE ASPARTATE, AMPHENTAMINE SULFATE, DEXTROAMPHE [Suspect]
     Indication: ATTENTION DEFICIT/HYPERACTIVITY DISORDER
     Dosage: SEE IMAGE
     Dates: start: 20070101, end: 20070402
  2. ADDERALL XR (AMPHETHAMINE ASPARTATE, AMPHENTAMINE SULFATE, DEXTROAMPHE [Suspect]
     Indication: ATTENTION DEFICIT/HYPERACTIVITY DISORDER
     Dosage: SEE IMAGE
     Dates: start: 20070401
  3. MOTRIN [Concomitant]

REACTIONS (2)
  - OPTIC NERVE DISORDER [None]
  - VITH NERVE PARALYSIS [None]
